FAERS Safety Report 18874068 (Version 2)
Quarter: 2021Q1

REPORT INFORMATION
  Report Type: Spontaneous
  Country: DE (occurrence: DE)
  Receive Date: 20210210
  Receipt Date: 20210329
  Transmission Date: 20210420
  Serious: Yes (Other)
  Sender: FDA-Public Use
  Company Number: DE-PFIZER INC-2021113902

PATIENT
  Age: 53 Year
  Sex: Female
  Weight: 70 kg

DRUGS (10)
  1. DOCETAXEL. [Suspect]
     Active Substance: DOCETAXEL
     Indication: HER2 POSITIVE BREAST CANCER
     Dosage: 75 MG/M2, EVERY 3 WEEKS (IN COMBINATION WITH PERJETA AND HERZUMA)
     Route: 042
     Dates: start: 20210113
  2. EPIRUBICIN HCL [Suspect]
     Active Substance: EPIRUBICIN HYDROCHLORIDE
     Indication: HER2 POSITIVE BREAST CANCER
     Dosage: UNK
     Route: 065
  3. DEXAMETHASONE. [Concomitant]
     Active Substance: DEXAMETHASONE
     Indication: PROPHYLAXIS OF NAUSEA AND VOMITING
     Dosage: 8 MG, EVERY 3 WEEKS
     Route: 042
     Dates: start: 20210113
  4. PERJETA [Suspect]
     Active Substance: PERTUZUMAB
     Dosage: 840 MG, EVERY 3 WEEKS (IN COMBINATION WITH HERZUMA AND DOCETAXEL)
     Route: 042
     Dates: start: 20210203
  5. ALOXI [Concomitant]
     Active Substance: PALONOSETRON HYDROCHLORIDE
     Indication: PROPHYLAXIS OF NAUSEA AND VOMITING
     Dosage: 0.25 MG, EVERY 3 WEEKS
     Route: 042
     Dates: start: 20210113
  6. DOCETAXEL. [Suspect]
     Active Substance: DOCETAXEL
     Dosage: 75 MG/M2, EVERY 3 WEEKS (IN COMBINATION WITH PERJETA AND HERZUMA)
     Route: 042
     Dates: start: 20210203
  7. HERZUMA [Suspect]
     Active Substance: TRASTUZUMAB-PKRB
     Indication: HER2 POSITIVE BREAST CANCER
     Dosage: 8 MG/KG, EVERY 3 WEEKS (IN COMBINATION WITH PERJETA AND DOCETAXEL)
     Route: 042
     Dates: start: 20210113
  8. PERJETA [Suspect]
     Active Substance: PERTUZUMAB
     Indication: HER2 POSITIVE BREAST CANCER
     Dosage: 840 MG, EVERY 3 WEEKS (IN COMBINATION WITH HERZUMA AND DOCETAXEL)
     Route: 042
     Dates: start: 20210113
  9. CYCLOPHOSPHAMID [Suspect]
     Active Substance: CYCLOPHOSPHAMIDE
     Indication: HER2 POSITIVE BREAST CANCER
     Dosage: COMBINATION WITH EPIRUBICIN
     Route: 065
  10. HERZUMA [Suspect]
     Active Substance: TRASTUZUMAB-PKRB
     Dosage: 8 MG/KG, EVERY 3 WEEKS (IN COMBINATION WITH PERJETA AND DOCETAXEL)
     Route: 042
     Dates: start: 20210203

REACTIONS (2)
  - Retinal haemorrhage [Recovering/Resolving]
  - Retinal tear [Recovering/Resolving]

NARRATIVE: CASE EVENT DATE: 20210122
